FAERS Safety Report 5376822-X (Version None)
Quarter: 2007Q3

REPORT INFORMATION
  Report Type: 
  Country: None (occurrence: None)
  Receive Date: 20070703
  Receipt Date: 20070628
  Transmission Date: 20080115
  Serious: Yes (Other)
  Sender: FDA-Public Use
  Company Number: PHEH2007US09416

PATIENT
  Age: 53 Year
  Sex: Female

DRUGS (1)
  1. ZOLEDRONATE [Suspect]
     Indication: BREAST CANCER METASTATIC
     Dosage: 4 MG, QMO
     Route: 042
     Dates: start: 20021201, end: 20070501

REACTIONS (3)
  - ABSCESS JAW [None]
  - OSTEONECROSIS [None]
  - PAIN IN JAW [None]
